FAERS Safety Report 24630676 (Version 1)
Quarter: 2024Q4

REPORT INFORMATION
  Report Type: Report from Study
  Country: ID (occurrence: ID)
  Receive Date: 20241118
  Receipt Date: 20241118
  Transmission Date: 20250114
  Serious: Yes (Hospitalization)
  Sender: MERCK KGAA
  Company Number: ID-Merck Healthcare KGaA-2024059359

PATIENT
  Age: 30 Year
  Sex: Female
  Weight: 89 kg

DRUGS (1)
  1. EUTHYROX [Suspect]
     Active Substance: LEVOTHYROXINE SODIUM
     Indication: Product used for unknown indication
     Dosage: EXPIRATION DATE: 24-JUN-2026

REACTIONS (1)
  - Thyroid pain [Unknown]

NARRATIVE: CASE EVENT DATE: 20220701
